FAERS Safety Report 8762699 (Version 1)
Quarter: 2012Q4

REPORT INFORMATION
  Report Type: 
  Country: NZ (occurrence: NZ)
  Receive Date: 20120831
  Receipt Date: 20120831
  Transmission Date: 20130627
  Serious: Yes (Congenital Anomaly)
  Sender: FDA-Public Use
  Company Number: NZ-TEVA-355737ISR

PATIENT

DRUGS (1)
  1. COPAXONE [Suspect]
     Route: 065
     Dates: end: 20120628

REACTIONS (1)
  - Trisomy 18 [Unknown]
